FAERS Safety Report 20218653 (Version 1)
Quarter: 2021Q4

REPORT INFORMATION
  Report Type: Report from Study
  Country: DE (occurrence: DE)
  Receive Date: 20211222
  Receipt Date: 20211222
  Transmission Date: 20220303
  Serious: Yes (Hospitalization)
  Sender: FDA-Public Use
  Company Number: DE-ABBVIE-21K-062-4205268-00

PATIENT
  Sex: Male

DRUGS (7)
  1. HUMIRA [Suspect]
     Active Substance: ADALIMUMAB
     Indication: Psoriatic arthropathy
     Route: 058
     Dates: start: 20181115
  2. METHOTREXATE SODIUM [Concomitant]
     Active Substance: METHOTREXATE SODIUM
     Indication: Psoriatic arthropathy
     Route: 058
  3. LEVOTHYROXINE SODIUM [Concomitant]
     Active Substance: LEVOTHYROXINE SODIUM
     Indication: Hypothyroidism
  4. CORTISONE ACETATE [Concomitant]
     Active Substance: CORTISONE ACETATE
     Indication: Psoriatic arthropathy
     Route: 048
  5. FOLIC ACID [Concomitant]
     Active Substance: FOLIC ACID
     Indication: Product used for unknown indication
  6. VITAMIN D3 [Concomitant]
     Active Substance: CHOLECALCIFEROL
     Indication: Product used for unknown indication
  7. PANTOPRAZOLE SODIUM [Concomitant]
     Active Substance: PANTOPRAZOLE SODIUM
     Indication: Product used for unknown indication

REACTIONS (6)
  - Deafness [Recovered/Resolved]
  - Diarrhoea [Not Recovered/Not Resolved]
  - Abscess limb [Recovered/Resolved]
  - Abscess neck [Recovered/Resolved]
  - Dizziness [Not Recovered/Not Resolved]
  - Vomiting [Not Recovered/Not Resolved]

NARRATIVE: CASE EVENT DATE: 20210101
